FAERS Safety Report 8196435-4 (Version None)
Quarter: 2012Q1

REPORT INFORMATION
  Report Type: 
  Country: None (occurrence: None)
  Receive Date: 20120309
  Receipt Date: 20120305
  Transmission Date: 20120608
  Serious: Yes (Other)
  Sender: FDA-Public Use
  Company Number: DK-PFIZER INC-2012059180

PATIENT
  Sex: Male

DRUGS (2)
  1. LYRICA [Suspect]
     Dosage: THREE DOUBLE DOSE
  2. LYRICA [Suspect]
     Dosage: 300 MG, 2X/DAY

REACTIONS (1)
  - DRUG ABUSE [None]
